FAERS Safety Report 19034549 (Version 1)
Quarter: 2021Q1

REPORT INFORMATION
  Report Type: Spontaneous
  Country: CN (occurrence: CN)
  Receive Date: 20210319
  Receipt Date: 20210319
  Transmission Date: 20210420
  Serious: Yes (Death, Hospitalization, Other)
  Sender: FDA-Public Use
  Company Number: CN-ASTRAZENECA-2021A151167

PATIENT
  Age: 10967 Day
  Sex: Male
  Weight: 46.5 kg

DRUGS (4)
  1. DAPAGLIFLOZIN. [Suspect]
     Active Substance: DAPAGLIFLOZIN
     Indication: BLOOD GLUCOSE ABNORMAL
     Route: 048
     Dates: start: 20210206, end: 20210219
  2. ACARBOSE. [Suspect]
     Active Substance: ACARBOSE
     Indication: BLOOD GLUCOSE ABNORMAL
     Route: 048
     Dates: start: 20210206, end: 20210219
  3. RECOMBINANT HUMAN INSULIN LISPRO [Concomitant]
     Indication: BLOOD GLUCOSE ABNORMAL
     Dosage: 10 U
     Route: 058
     Dates: start: 20210205, end: 20210311
  4. INSULIN GLARGINE [Concomitant]
     Active Substance: INSULIN GLARGINE
     Indication: BLOOD GLUCOSE ABNORMAL
     Dosage: 20 U
     Route: 058
     Dates: start: 20210205, end: 20210311

REACTIONS (2)
  - Drug-induced liver injury [Unknown]
  - Transaminases increased [Fatal]

NARRATIVE: CASE EVENT DATE: 20210214
